FAERS Safety Report 14870989 (Version 13)
Quarter: 2022Q2

REPORT INFORMATION
  Report Type: Other
  Country: CA (occurrence: CA)
  Receive Date: 20180509
  Receipt Date: 20220525
  Transmission Date: 20220721
  Serious: Yes (Other)
  Sender: FDA-Public Use
  Company Number: CA-GLENMARK PHARMACEUTICALS-2018GMK034960

PATIENT

DRUGS (27)
  1. GABAPENTIN [Suspect]
     Active Substance: GABAPENTIN
     Indication: Cough
     Dosage: 900 G, TID (3 EVERY 1 DAYS)
     Route: 065
  2. GABAPENTIN [Suspect]
     Active Substance: GABAPENTIN
     Dosage: UNK
     Route: 065
  3. GABAPENTIN [Suspect]
     Active Substance: GABAPENTIN
     Dosage: 900 G, TID (3 EVERY 1 DAYS)
     Route: 065
  4. ESBRIET [Suspect]
     Active Substance: PIRFENIDONE
     Indication: Idiopathic pulmonary fibrosis
     Dosage: 267 MG, TID (3 EVERY 1 DAY)
     Route: 048
  5. ESBRIET [Suspect]
     Active Substance: PIRFENIDONE
     Dosage: 267 MG, TID (3 EVERY 1 DAY)
     Route: 048
  6. ESBRIET [Suspect]
     Active Substance: PIRFENIDONE
     Dosage: 801 MG, TID (3 EVERY 1 DAY)
     Route: 048
  7. ESBRIET [Suspect]
     Active Substance: PIRFENIDONE
     Dosage: UNK UNK, TID (3 EVERY 1 DAYS)
     Route: 048
  8. ESBRIET [Suspect]
     Active Substance: PIRFENIDONE
     Indication: Idiopathic pulmonary fibrosis
     Dosage: 801 MG, TID (3 EVERY 1 DAYS)
     Route: 048
  9. ESBRIET [Suspect]
     Active Substance: PIRFENIDONE
     Dosage: 267 MG, 6 EVERY 1 DAY
     Route: 048
  10. ESBRIET [Suspect]
     Active Substance: PIRFENIDONE
     Dosage: 267 MG, 1 EVERY 9 DAYS
     Route: 048
  11. ESBRIET [Suspect]
     Active Substance: PIRFENIDONE
     Dosage: 534 MG, TID (3 EVERY 1 DAYS)
     Route: 048
  12. ESBRIET [Suspect]
     Active Substance: PIRFENIDONE
     Dosage: 267 MG, TID (3 EVERY 1 DAYS)
     Route: 048
  13. ESBRIET [Suspect]
     Active Substance: PIRFENIDONE
     Dosage: UNK (3 EVERY 1 DAYS)
     Route: 048
  14. ESBRIET [Suspect]
     Active Substance: PIRFENIDONE
     Dosage: UNK (3 EVERY 1 DAYS)
     Route: 048
  15. ESBRIET [Suspect]
     Active Substance: PIRFENIDONE
     Dosage: UNK (3 EVERY 1 DAYS)
     Route: 048
  16. ESBRIET [Suspect]
     Active Substance: PIRFENIDONE
     Dosage: UNK (3 EVERY 1 DAYS)
     Route: 048
  17. ESBRIET [Suspect]
     Active Substance: PIRFENIDONE
     Dosage: UNK (3 EVERY 1 DAYS)
     Route: 048
  18. METFORMIN [Concomitant]
     Active Substance: METFORMIN HYDROCHLORIDE
     Indication: Product used for unknown indication
     Dosage: UNK
     Route: 065
  19. METFORMIN [Concomitant]
     Active Substance: METFORMIN HYDROCHLORIDE
     Indication: Product used for unknown indication
     Dosage: UNK
     Route: 065
  20. NEXIUM [Concomitant]
     Active Substance: ESOMEPRAZOLE MAGNESIUM
     Indication: Abdominal discomfort
     Dosage: UNK
     Route: 065
  21. ROSUVASTATIN CALCIUM [Concomitant]
     Active Substance: ROSUVASTATIN CALCIUM
     Indication: Product used for unknown indication
     Dosage: 900 GRAM, TID (3 EVERY 1 DAYS)
     Route: 065
  22. ALBUTEROL [Concomitant]
     Active Substance: ALBUTEROL
     Indication: Product used for unknown indication
     Dosage: UNK
     Route: 065
  23. ROSUVASTATIN [Concomitant]
     Active Substance: ROSUVASTATIN
     Indication: Product used for unknown indication
     Dosage: UNK
     Route: 065
  24. ESOMEPRAZOLE [Concomitant]
     Active Substance: ESOMEPRAZOLE
     Indication: Abdominal discomfort
     Dosage: 40 MILLIGRAM, OD (1 EVERY 1 DAYS)
     Route: 065
  25. CODEINE [Concomitant]
     Active Substance: CODEINE
     Indication: Constipation
     Dosage: UNK
     Route: 065
  26. MAGNESIUM [Concomitant]
     Active Substance: MAGNESIUM
     Indication: Product used for unknown indication
     Dosage: UNK
     Route: 065
  27. ZINC [Concomitant]
     Active Substance: ZINC
     Indication: Product used for unknown indication
     Route: 065

REACTIONS (42)
  - Mobility decreased [Not Recovered/Not Resolved]
  - Diaphragmalgia [Not Recovered/Not Resolved]
  - Gastrooesophageal reflux disease [Not Recovered/Not Resolved]
  - Loss of personal independence in daily activities [Not Recovered/Not Resolved]
  - Pharyngeal haemorrhage [Not Recovered/Not Resolved]
  - Oxygen saturation decreased [Not Recovered/Not Resolved]
  - Poor quality sleep [Not Recovered/Not Resolved]
  - Neuralgia [Not Recovered/Not Resolved]
  - Oropharyngeal pain [Not Recovered/Not Resolved]
  - Haemoptysis [Not Recovered/Not Resolved]
  - Lethargy [Not Recovered/Not Resolved]
  - Pulmonary function test abnormal [Not Recovered/Not Resolved]
  - Stress [Not Recovered/Not Resolved]
  - Aphonia [Not Recovered/Not Resolved]
  - Gingival disorder [Not Recovered/Not Resolved]
  - Haemoglobin decreased [Not Recovered/Not Resolved]
  - Heart rate increased [Not Recovered/Not Resolved]
  - Hyperhidrosis [Not Recovered/Not Resolved]
  - Ageusia [Not Recovered/Not Resolved]
  - Epistaxis [Not Recovered/Not Resolved]
  - Photosensitivity reaction [Not Recovered/Not Resolved]
  - Decreased appetite [Not Recovered/Not Resolved]
  - Headache [Not Recovered/Not Resolved]
  - Abdominal pain [Not Recovered/Not Resolved]
  - Anxiety [Not Recovered/Not Resolved]
  - Gait disturbance [Not Recovered/Not Resolved]
  - Abdominal pain upper [Not Recovered/Not Resolved]
  - Cough [Not Recovered/Not Resolved]
  - Constipation [Not Recovered/Not Resolved]
  - Dyspnoea [Not Recovered/Not Resolved]
  - Fatigue [Not Recovered/Not Resolved]
  - Nausea [Not Recovered/Not Resolved]
  - Sedation [Not Recovered/Not Resolved]
  - Vomiting [Not Recovered/Not Resolved]
  - Nervousness [Not Recovered/Not Resolved]
  - Weight increased [Not Recovered/Not Resolved]
  - Asthenia [Not Recovered/Not Resolved]
  - Depressed mood [Not Recovered/Not Resolved]
  - Amnesia [Not Recovered/Not Resolved]
  - Chest pain [Not Recovered/Not Resolved]
  - Somnolence [Not Recovered/Not Resolved]
  - Product use in unapproved indication [Unknown]
